FAERS Safety Report 19211593 (Version 1)
Quarter: 2021Q2

REPORT INFORMATION
  Report Type: Spontaneous
  Country: US (occurrence: US)
  Receive Date: 20210503
  Receipt Date: 20210503
  Transmission Date: 20210717
  Serious: No
  Sender: FDA-Public Use
  Company Number: None

PATIENT
  Age: 62 Year
  Sex: Male
  Weight: 98 kg

DRUGS (2)
  1. LISINOPRIL (LISINOPRIL 10MG TAB) [Suspect]
     Active Substance: LISINOPRIL
     Indication: HYPERTENSION
     Route: 048
     Dates: start: 20170203, end: 20200225
  2. GLOVE (GLOVE LATEX SZ 8 STERILE (PAIR)) [Suspect]
     Active Substance: NATURAL LATEX RUBBER
     Indication: SURGERY
     Dates: start: 20200225, end: 20200225

REACTIONS (2)
  - Hypersensitivity [None]
  - Angioedema [None]
